FAERS Safety Report 10024217 (Version 1)
Quarter: 2014Q1

REPORT INFORMATION
  Report Type: Spontaneous
  Country: CN (occurrence: CN)
  Receive Date: 20140320
  Receipt Date: 20140320
  Transmission Date: 20141002
  Serious: Yes (Hospitalization)
  Sender: FDA-Public Use
  Company Number: CN-ASTRAZENECA-2014SE18232

PATIENT
  Age: 11423 Day
  Sex: Female
  Weight: 57 kg

DRUGS (3)
  1. NAROPIN [Suspect]
     Indication: ANAESTHESIA
     Route: 065
     Dates: start: 20140220, end: 20140220
  2. YIJIEKA [Concomitant]
     Indication: ANALGESIC THERAPY
     Dates: start: 20140220, end: 20140220
  3. JIALUONING [Concomitant]
     Indication: ANALGESIC THERAPY
     Dosage: 30MG /150ML
     Dates: start: 20140220, end: 20140220

REACTIONS (3)
  - Muscular weakness [Recovering/Resolving]
  - Areflexia [Recovering/Resolving]
  - Hypoaesthesia [Recovering/Resolving]
